FAERS Safety Report 4722169-1 (Version None)
Quarter: 2005Q3

REPORT INFORMATION
  Report Type: 
  Country: None (occurrence: None)
  Receive Date: 20050722
  Receipt Date: 20040823
  Transmission Date: 20060218
  Serious: No
  Sender: FDA-Public Use
  Company Number: US-GLAXOSMITHKLINE-A0523060A

PATIENT
  Age: 59 Year
  Sex: Female

DRUGS (10)
  1. AVANDIA [Suspect]
     Dosage: 4MG PER DAY
     Route: 048
     Dates: start: 20040817
  2. GLUCOTROL XL [Concomitant]
  3. GLUCOPHAGE [Concomitant]
  4. XANAX [Concomitant]
  5. NIFEREX [Concomitant]
  6. ZOLOFT [Concomitant]
  7. VASOTEC RPD [Concomitant]
  8. MECLIZINE [Concomitant]
  9. NAPROSYN [Concomitant]
  10. PREMARIN [Concomitant]

REACTIONS (5)
  - ABDOMINAL DISTENSION [None]
  - AGITATION [None]
  - BLOOD GLUCOSE INCREASED [None]
  - BLOOD KETONE BODY [None]
  - HUNGER [None]
